FAERS Safety Report 4969460-1 (Version None)
Quarter: 2006Q2

REPORT INFORMATION
  Report Type: 
  Country: None (occurrence: None)
  Receive Date: 20060403
  Receipt Date: 20060321
  Transmission Date: 20061013
  Serious: Yes (Death)
  Sender: FDA-Public Use
  Company Number: 200609862

PATIENT
  Age: 42 Year
  Sex: Male

DRUGS (2)
  1. ALBUMINAR-5 [Suspect]
     Dosage: IV
     Route: 042
  2. RED BLOOD CELLS [Concomitant]

REACTIONS (3)
  - BLOOD PRESSURE DECREASED [None]
  - HYPOXIA [None]
  - RESPIRATORY FAILURE [None]
